FAERS Safety Report 6757954-8 (Version None)
Quarter: 2010Q2

REPORT INFORMATION
  Report Type: 
  Country: None (occurrence: None)
  Receive Date: 20100602
  Receipt Date: 20100518
  Transmission Date: 20101027
  Serious: Yes (Hospitalization)
  Sender: FDA-Public Use
  Company Number: 2010AC000447

PATIENT
  Sex: Female

DRUGS (1)
  1. DIGOXIN [Suspect]
     Indication: ATRIAL FIBRILLATION
     Dosage: .25 MG;QD;PO
     Route: 048
     Dates: start: 20060801, end: 20080301

REACTIONS (11)
  - ANXIETY [None]
  - BRADYCARDIA [None]
  - ECONOMIC PROBLEM [None]
  - HYPOTENSION [None]
  - INJURY [None]
  - METABOLIC ACIDOSIS [None]
  - PAIN [None]
  - RESPIRATORY FAILURE [None]
  - SOCIAL PROBLEM [None]
  - SURGERY [None]
  - THERAPEUTIC AGENT TOXICITY [None]
